FAERS Safety Report 22527858 (Version 1)
Quarter: 2023Q2

REPORT INFORMATION
  Report Type: Spontaneous
  Country: BE (occurrence: BE)
  Receive Date: 20230606
  Receipt Date: 20230606
  Transmission Date: 20230722
  Serious: Yes (Disabling)
  Sender: FDA-Public Use
  Company Number: None

PATIENT

DRUGS (1)
  1. BEMPEDOIC ACID [Suspect]
     Active Substance: BEMPEDOIC ACID
     Indication: Blood cholesterol increased
     Dosage: 1 DF, QD
     Route: 048
     Dates: start: 20230210, end: 20230520

REACTIONS (4)
  - Apathy [Recovering/Resolving]
  - Muscular weakness [Recovering/Resolving]
  - Somnolence [Recovering/Resolving]
  - Fatigue [Recovering/Resolving]
